FAERS Safety Report 4326824-7 (Version None)
Quarter: 2004Q1

REPORT INFORMATION
  Report Type: 
  Country: None (occurrence: None)
  Receive Date: 20040322
  Receipt Date: 20040210
  Transmission Date: 20041129
  Serious: Yes (Hospitalization)
  Sender: FDA-Public Use
  Company Number: PHEH2004US00488

PATIENT
  Age: 72 Year
  Sex: Female
  Weight: 95 kg

DRUGS (11)
  1. ZOMETA [Suspect]
     Indication: MULTIPLE MYELOMA
     Dosage: 4 MG, ONCE/SINGLE, INTRAVENOUS
     Route: 042
     Dates: start: 20031105, end: 20031105
  2. COREG [Concomitant]
  3. MULTIPLE VITAMINS (RETINOL, VITAMIN B NOS) [Concomitant]
  4. ZANTAC [Concomitant]
  5. GLUCOTROL [Concomitant]
  6. DIGOXIN [Concomitant]
  7. FUROSEMIDE [Concomitant]
  8. SYNTHROID [Concomitant]
  9. K-DUR 10 [Concomitant]
  10. SPIRONOLACTONE [Concomitant]
  11. ASPIRIN [Concomitant]

REACTIONS (7)
  - BLOOD CREATININE INCREASED [None]
  - BLOOD UREA INCREASED [None]
  - DIALYSIS [None]
  - ELECTROLYTE IMBALANCE [None]
  - FATIGUE [None]
  - RENAL FAILURE [None]
  - STAPHYLOCOCCAL INFECTION [None]
